FAERS Safety Report 5112974-4 (Version None)
Quarter: 2006Q3

REPORT INFORMATION
  Report Type: 
  Country: None (occurrence: None)
  Receive Date: 20060921
  Receipt Date: 20060921
  Transmission Date: 20061208
  Serious: Yes (Disabling)
  Sender: FDA-Public Use
  Company Number: None

PATIENT
  Age: 41 Year
  Sex: Male
  Weight: 66.4 kg

DRUGS (1)
  1. AZITHROMYCIN [Suspect]
     Indication: RESPIRATORY TRACT INFECTION
     Dosage: #2, DAY 1, #1 OTHER DAYS UD PO
     Route: 048

REACTIONS (4)
  - GENITAL BURNING SENSATION [None]
  - HYPERSENSITIVITY [None]
  - PAIN [None]
  - STEVENS-JOHNSON SYNDROME [None]
